FAERS Safety Report 5232568-X (Version None)
Quarter: 2007Q1

REPORT INFORMATION
  Report Type: 
  Country: None (occurrence: None)
  Receive Date: 20070207
  Receipt Date: 20070130
  Transmission Date: 20070707
  Serious: Yes (Hospitalization)
  Sender: FDA-Public Use
  Company Number: GB-AVENTIS-200710939GDDC

PATIENT
  Sex: Male

DRUGS (8)
  1. LANTUS [Suspect]
     Route: 058
     Dates: start: 20060701
  2. NOVORAPID [Concomitant]
     Dosage: DOSE: 24 - 16 - 24
     Route: 058
  3. METFORMIN HCL [Concomitant]
  4. AMLODIPINE [Concomitant]
     Route: 048
  5. LISINOPRIL [Concomitant]
  6. ASPIRIN [Concomitant]
  7. LANSOPRAZOLE [Concomitant]
  8. GAVISCON                           /01405501/ [Concomitant]
     Dosage: DOSE QUANTITY: 3; DOSE UNIT: TEASPOON

REACTIONS (2)
  - CHEST DISCOMFORT [None]
  - LOWER RESPIRATORY TRACT INFECTION [None]
